FAERS Safety Report 14938543 (Version 1)
Quarter: 2018Q2

REPORT INFORMATION
  Report Type: Report from Study
  Country: None (occurrence: DE)
  Receive Date: 20180525
  Receipt Date: 20180525
  Transmission Date: 20180711
  Serious: Yes (Other)
  Sender: FDA-Public Use
  Company Number: DE-ABBVIE-18K-062-2366414-00

PATIENT
  Sex: Female
  Weight: 44 kg

DRUGS (1)
  1. HUMIRA [Suspect]
     Active Substance: ADALIMUMAB
     Indication: CROHN^S DISEASE
     Route: 058
     Dates: start: 201703, end: 201804

REACTIONS (3)
  - Drug specific antibody present [Not Recovered/Not Resolved]
  - Enteritis [Not Recovered/Not Resolved]
  - Fistula of small intestine [Not Recovered/Not Resolved]
